FAERS Safety Report 8931810 (Version 1)
Quarter: 2012Q4

REPORT INFORMATION
  Report Type: 
  Country: US (occurrence: US)
  Receive Date: 20121128
  Receipt Date: 20121128
  Transmission Date: 20130627
  Serious: Yes (Other)
  Sender: FDA-Public Use
  Company Number: US-ELI_LILLY_AND_COMPANY-US201211006303

PATIENT
  Sex: Female

DRUGS (3)
  1. HUMALOG LISPRO [Suspect]
     Indication: DIABETES MELLITUS
     Route: 058
  2. LANTUS [Concomitant]
  3. NOVOLOG [Concomitant]

REACTIONS (1)
  - Blood glucose increased [Not Recovered/Not Resolved]
